FAERS Safety Report 5469646-6 (Version None)
Quarter: 2007Q3

REPORT INFORMATION
  Report Type: 
  Country: None (occurrence: None)
  Receive Date: 20070927
  Receipt Date: 20070926
  Transmission Date: 20080115
  Serious: Yes (Death)
  Sender: FDA-Public Use
  Company Number: A0684397A

PATIENT
  Age: 75 Year
  Sex: Male

DRUGS (4)
  1. NIQUITIN [Suspect]
     Indication: SMOKING CESSATION THERAPY
     Dosage: 1PAT PER DAY
     Route: 062
     Dates: start: 20070914, end: 20070915
  2. DIAZEPAM [Concomitant]
  3. FLUNARIZINE [Concomitant]
  4. LOVASTATIN [Concomitant]

REACTIONS (4)
  - ACUTE MYOCARDIAL INFARCTION [None]
  - COUGH [None]
  - HYPERHIDROSIS [None]
  - PYREXIA [None]
